FAERS Safety Report 11071598 (Version 1)
Quarter: 2015Q2

REPORT INFORMATION
  Report Type: Spontaneous
  Country: US (occurrence: None)
  Receive Date: 20150424
  Receipt Date: 20150424
  Transmission Date: 20150821
  Serious: Yes (Hospitalization)
  Sender: FDA-Public Use
  Company Number: 1589182

PATIENT
  Age: 55 Year
  Sex: Female

DRUGS (2)
  1. VANCOCIN [Suspect]
     Active Substance: VANCOMYCIN HYDROCHLORIDE
  2. CEFEPIME [Suspect]
     Active Substance: CEFEPIME\CEFEPIME HYDROCHLORIDE

REACTIONS (3)
  - Asthenia [None]
  - Blood lactic acid increased [None]
  - Acute generalised exanthematous pustulosis [None]
